FAERS Safety Report 8847372 (Version 1)
Quarter: 2012Q4

REPORT INFORMATION
  Report Type: 
  Country: US (occurrence: US)
  Receive Date: 20121018
  Receipt Date: 20121018
  Transmission Date: 20130627
  Serious: No
  Sender: FDA-Public Use
  Company Number: US-TEVA-364682USA

PATIENT
  Age: 69 Year
  Sex: Male
  Weight: 145.28 kg

DRUGS (10)
  1. QVAR [Suspect]
     Indication: CHRONIC OBSTRUCTIVE PULMONARY DISEASE
     Dosage: 160 Microgram Daily;
     Route: 055
     Dates: start: 20121010
  2. PREDNISONE [Concomitant]
     Indication: CHRONIC OBSTRUCTIVE PULMONARY DISEASE
     Route: 048
     Dates: end: 20121010
  3. WARFARIN [Concomitant]
     Indication: THROMBOSIS
     Dosage: 5 Milligram Daily;
  4. INSULIN [Concomitant]
     Indication: DIABETES MELLITUS
  5. FUROSEMIDE [Concomitant]
     Indication: DIURETIC THERAPY
     Dosage: 80 Microgram Daily;
     Route: 048
  6. POTASSIUM CHLORIDE [Concomitant]
     Indication: VITAMIN SUPPLEMENTATION
     Dosage: 20 Milliequivalents Daily;
  7. LISINOPRIL [Concomitant]
     Indication: HYPERTENSION
     Dosage: 5 Milligram Daily;
  8. OMEPRAZOLE [Concomitant]
     Indication: ABDOMINAL DISCOMFORT
  9. BUMETANIDE [Concomitant]
     Indication: DIURETIC THERAPY
     Dosage: 2 Milligram Daily;
  10. AZITHROMYCIN [Concomitant]
     Indication: RESPIRATORY TRACT INFECTION
     Dosage: 250 Milligram Daily;
     Dates: start: 20121010

REACTIONS (2)
  - Chest pain [Not Recovered/Not Resolved]
  - Back pain [Not Recovered/Not Resolved]
